FAERS Safety Report 24792357 (Version 1)
Quarter: 2024Q4

REPORT INFORMATION
  Report Type: Spontaneous
  Country: US (occurrence: US)
  Receive Date: 20241231
  Receipt Date: 20241231
  Transmission Date: 20250115
  Serious: No
  Sender: TEVA
  Company Number: US-TEVA-VS-3275331

PATIENT
  Sex: Female

DRUGS (1)
  1. CLONIDINE HYDROCHLORIDE [Suspect]
     Active Substance: CLONIDINE HYDROCHLORIDE
     Indication: Hypertension
     Dosage: 0.2 MG/24 HR
     Route: 062

REACTIONS (6)
  - Hypersensitivity [Not Recovered/Not Resolved]
  - Application site pain [Not Recovered/Not Resolved]
  - Wrong technique in product usage process [Unknown]
  - Application site swelling [Not Recovered/Not Resolved]
  - Application site erythema [Not Recovered/Not Resolved]
  - Application site discomfort [Not Recovered/Not Resolved]

NARRATIVE: CASE EVENT DATE: 20241001
